FAERS Safety Report 5311882-3 (Version None)
Quarter: 2007Q2

REPORT INFORMATION
  Report Type: 
  Country: None (occurrence: None)
  Receive Date: 20070427
  Receipt Date: 20070427
  Transmission Date: 20071010
  Serious: No
  Sender: FDA-Public Use
  Company Number: None

PATIENT
  Sex: Male
  Weight: 84.8226 kg

DRUGS (1)
  1. LEUKINE [Suspect]
     Dosage: 500 MCG  DAILY  SQ
     Route: 058
     Dates: start: 20070223, end: 20070301

REACTIONS (6)
  - BONE PAIN [None]
  - DIZZINESS [None]
  - FLUSHING [None]
  - HYPERHIDROSIS [None]
  - MUSCLE SPASMS [None]
  - PAIN [None]
